FAERS Safety Report 25587007 (Version 1)
Quarter: 2025Q3

REPORT INFORMATION
  Report Type: Spontaneous
  Country: US (occurrence: US)
  Receive Date: 20250721
  Receipt Date: 20250721
  Transmission Date: 20251021
  Serious: No
  Sender: Phathom Pharmaceuticals
  Company Number: US-PHATHOM PHARMACEUTICALS INC.-2025PHT00855

PATIENT
  Age: 72 Year
  Sex: Female
  Weight: 96.62 kg

DRUGS (16)
  1. VOQUEZNA [Suspect]
     Active Substance: VONOPRAZAN FUMARATE
     Indication: Gastrooesophageal reflux disease
     Dosage: 20 MG, 1X/DAY
     Route: 048
     Dates: start: 2025, end: 20250414
  2. VOQUEZNA [Suspect]
     Active Substance: VONOPRAZAN FUMARATE
     Indication: Oesophagitis
  3. ZOFRAN [Concomitant]
     Active Substance: ONDANSETRON HYDROCHLORIDE
  4. UBRELVY [Concomitant]
     Active Substance: UBROGEPANT
  5. KLOR-CON [Concomitant]
     Active Substance: POTASSIUM CHLORIDE
  6. DULOXETINE [Concomitant]
     Active Substance: DULOXETINE
  7. ALBUTEROL [Concomitant]
     Active Substance: ALBUTEROL
  8. ATORVASTATIN [Concomitant]
     Active Substance: ATORVASTATIN
  9. PREDNISONE [Concomitant]
     Active Substance: PREDNISONE
  10. GABAPENTIN [Concomitant]
     Active Substance: GABAPENTIN
  11. METHOTREXATE [Concomitant]
     Active Substance: METHOTREXATE
  12. FOLIC ACID [Concomitant]
     Active Substance: FOLIC ACID
  13. CANDESARTAN [Concomitant]
     Active Substance: CANDESARTAN
  14. LASIX [Concomitant]
     Active Substance: FUROSEMIDE
  15. CARTIA XT [Concomitant]
     Active Substance: DILTIAZEM HYDROCHLORIDE
  16. ELIQUIS [Concomitant]
     Active Substance: APIXABAN

REACTIONS (3)
  - Blood pressure abnormal [Recovering/Resolving]
  - Blood glucose abnormal [Recovering/Resolving]
  - Renal impairment [Recovering/Resolving]

NARRATIVE: CASE EVENT DATE: 20250101
